FAERS Safety Report 4348583-4 (Version None)
Quarter: 2004Q2

REPORT INFORMATION
  Report Type: 
  Country: None (occurrence: None)
  Receive Date: 20040423
  Receipt Date: 20040416
  Transmission Date: 20050107
  Serious: Yes (Other)
  Sender: FDA-Public Use
  Company Number: HQWYE293331MAR04

PATIENT
  Age: 48 Year
  Sex: Male
  Weight: 90.8 kg

DRUGS (2)
  1. EFFEXOR XR [Suspect]
     Indication: DEPRESSION
     Dosage: 300 MG 1X PER 1 DAY, ORAL
     Route: 048
  2. ALLOPURINOL [Concomitant]

REACTIONS (6)
  - AGGRESSION [None]
  - AGITATION [None]
  - HOMICIDAL IDEATION [None]
  - HOSTILITY [None]
  - IMPULSIVE BEHAVIOUR [None]
  - SUICIDAL IDEATION [None]
